FAERS Safety Report 5317566-X (Version None)
Quarter: 2007Q2

REPORT INFORMATION
  Report Type: 
  Country: None (occurrence: None)
  Receive Date: 20070507
  Receipt Date: 20070425
  Transmission Date: 20071010
  Serious: Yes (Hospitalization, Other)
  Sender: FDA-Public Use
  Company Number: PHEH2007US04543

PATIENT
  Age: 52 Year
  Sex: Male
  Weight: 113 kg

DRUGS (14)
  1. ZELNORM [Suspect]
     Indication: GASTROENTERITIS VIRAL
     Dosage: 6 MG, TID
     Route: 048
     Dates: start: 20050201, end: 20070407
  2. NOVOLOG [Concomitant]
     Indication: DIABETES MELLITUS
     Dosage: VARIES, BID
     Route: 058
     Dates: start: 20050101
  3. POTASSIUM ACETATE [Concomitant]
     Indication: BLOOD POTASSIUM DECREASED
     Dosage: 10 MG, QD
     Route: 048
     Dates: start: 20050101
  4. PROTONIX [Concomitant]
     Indication: GASTROOESOPHAGEAL REFLUX DISEASE
     Dosage: 40 MG, BID
     Route: 048
     Dates: start: 20050101
  5. TOPROL-XL [Concomitant]
     Indication: HYPERTENSION
     Dosage: 25 MG, QD
     Route: 048
     Dates: start: 20050101
  6. AVODART [Concomitant]
     Indication: BENIGN PROSTATIC HYPERPLASIA
     Dosage: 0.5 MG, QD
     Route: 048
     Dates: start: 20050101
  7. FOSINOPRIL SODIUM [Concomitant]
     Dosage: 20 MG, BID
     Route: 048
     Dates: start: 20050101
  8. FUROSEMIDE [Concomitant]
     Dosage: 20 MG, BID
     Route: 048
     Dates: start: 20050101
  9. HYDROCHLOROTHIAZIDE [Concomitant]
     Indication: HYPERTENSION
     Dosage: 25 MG, QD
     Route: 048
     Dates: start: 20050101
  10. LANTUS [Concomitant]
     Indication: DIABETES MELLITUS
     Dosage: VARIES, QD
     Route: 058
     Dates: start: 20050101
  11. ZOCOR [Concomitant]
     Indication: BLOOD CHOLESTEROL INCREASED
     Dosage: 40 MG, QD
     Route: 048
     Dates: start: 20050101
  12. LUMIGAN [Concomitant]
     Indication: DIABETES MELLITUS
     Dosage: 0.03 %, 1 GTT QD EACH EYE AT NIGHT
     Route: 047
     Dates: start: 20060101
  13. TIMOLOL MALEATE [Concomitant]
     Indication: DIABETES MELLITUS
     Dosage: 0.5 %, 1 GTT QD EACH EYE IN AM
     Route: 047
     Dates: start: 20060101
  14. ASPIRIN [Concomitant]
     Indication: PROPHYLAXIS
     Dosage: 81 MG, BID
     Route: 048
     Dates: start: 20050101

REACTIONS (1)
  - LOSS OF CONSCIOUSNESS [None]
